FAERS Safety Report 20020189 (Version 1)
Quarter: 2021Q4

REPORT INFORMATION
  Report Type: Spontaneous
  Country: JP (occurrence: JP)
  Receive Date: 20211101
  Receipt Date: 20211101
  Transmission Date: 20220303
  Serious: Yes (Hospitalization)
  Sender: FDA-Public Use
  Company Number: JP-TOLMAR, INC.-21JP031166

PATIENT
  Age: 24 Year
  Sex: Female

DRUGS (8)
  1. ELIGARD [Suspect]
     Active Substance: LEUPROLIDE ACETATE
     Indication: Breast cancer stage II
     Dosage: 22.5 MILLIGRAM
  2. TAMOXIFEN CITRATE [Concomitant]
     Active Substance: TAMOXIFEN CITRATE
     Indication: Breast cancer stage II
     Dosage: 20 MILLIGRAM, QD
  3. CYCLOPHOSPHAMIDE [Concomitant]
     Active Substance: CYCLOPHOSPHAMIDE
     Indication: Breast cancer stage II
  4. MENOPAUSAL GONADOTROPIN [Concomitant]
     Indication: Product used for unknown indication
     Dosage: 2700 INTERNATIONAL UNIT
  5. LETROZOLE [Concomitant]
     Active Substance: LETROZOLE
     Indication: Ovarian hyperstimulation syndrome
     Dosage: 2.5 MILLIGRAM, QD
  6. LETROZOLE [Concomitant]
     Active Substance: LETROZOLE
     Dosage: 5 MILLIGRAM, QD
  7. HUMAN CHORIONIC GONADOTROPIN [Concomitant]
     Active Substance: GONADOTROPHIN, CHORIONIC
     Indication: Product used for unknown indication
     Dosage: 10000 INTERNATIONAL UNIT
  8. CABERGOLINE [Concomitant]
     Active Substance: CABERGOLINE
     Indication: Ovarian hyperstimulation syndrome
     Dosage: 0.5 MILLIGRAM, QD

REACTIONS (2)
  - Ovarian hyperstimulation syndrome [Unknown]
  - Off label use [Unknown]
